FAERS Safety Report 5117341-5 (Version None)
Quarter: 2006Q3

REPORT INFORMATION
  Report Type: 
  Country: None (occurrence: None)
  Receive Date: 20060927
  Receipt Date: 20060927
  Transmission Date: 20061208
  Serious: Yes (Hospitalization)
  Sender: FDA-Public Use
  Company Number: None

PATIENT
  Sex: Male
  Weight: 68.0396 kg

DRUGS (3)
  1. DOCETAXEL [Suspect]
     Indication: NEOPLASM MALIGNANT
     Dosage: 138 MG IV EVERY 2 WKS
     Route: 042
     Dates: start: 20060829
  2. CISPLATIN [Suspect]
     Indication: NEOPLASM MALIGNANT
     Dosage: 138 MG IV EVERY 2WKS
     Route: 042
     Dates: start: 20060829
  3. ERBITUX [Suspect]
     Dosage: 460 MG IV EVERY WEEK
     Route: 042
     Dates: start: 20060829

REACTIONS (5)
  - ARTHRALGIA [None]
  - DIARRHOEA [None]
  - NAUSEA [None]
  - OSTEOARTHRITIS [None]
  - VOMITING [None]
